FAERS Safety Report 10083568 (Version 1)
Quarter: 2014Q2

REPORT INFORMATION
  Report Type: Spontaneous
  Country: JP (occurrence: JP)
  Receive Date: 20140417
  Receipt Date: 20140417
  Transmission Date: 20141212
  Serious: Yes (Other)
  Sender: FDA-Public Use
  Company Number: JP-JNJFOC-20140405911

PATIENT
  Age: 48 Year
  Sex: Male

DRUGS (4)
  1. HALOPERIDOL [Suspect]
     Indication: MANIA
     Route: 065
  2. HALOPERIDOL [Suspect]
     Indication: DEPRESSION
     Route: 065
  3. RISPERIDONE [Suspect]
     Indication: MANIA
     Route: 065
  4. RISPERIDONE [Suspect]
     Indication: DEPRESSION
     Route: 065

REACTIONS (2)
  - Neurological symptom [Recovering/Resolving]
  - Drug ineffective [Unknown]
